FAERS Safety Report 23302273 (Version 1)
Quarter: 2023Q4

REPORT INFORMATION
  Report Type: Spontaneous
  Country: KR (occurrence: KR)
  Receive Date: 20231215
  Receipt Date: 20231215
  Transmission Date: 20240110
  Serious: Yes (Other)
  Sender: FDA-Public Use
  Company Number: KR-ASTELLAS-2023US036852

PATIENT
  Sex: Male

DRUGS (1)
  1. HARNAL [Suspect]
     Active Substance: TAMSULOSIN HYDROCHLORIDE
     Indication: Benign prostatic hyperplasia
     Dosage: 0.2 MG, QD (0.2 MG, ONCE DAILY (ONE TABLET ONCE DAILY BEFORE BED))
     Route: 065

REACTIONS (4)
  - Haemorrhoids [Unknown]
  - Anal sphincter atony [Unknown]
  - Anal incontinence [Unknown]
  - Diarrhoea [Unknown]
